FAERS Safety Report 5044569-5 (Version None)
Quarter: 2006Q2

REPORT INFORMATION
  Report Type: 
  Country: None (occurrence: None)
  Receive Date: 20060629
  Receipt Date: 20060620
  Transmission Date: 20061013
  Serious: Yes (Life-Threatening)
  Sender: FDA-Public Use
  Company Number: 2006072210

PATIENT
  Sex: Male

DRUGS (2)
  1. MAGNEX (SULBACTAM, CEFOPERAZONE) [Suspect]
     Indication: DRUG USE FOR UNKNOWN INDICATION
     Dates: start: 20060519, end: 20060524
  2. PHYTONADIONE [Concomitant]

REACTIONS (3)
  - COAGULOPATHY [None]
  - HAEMODIALYSIS [None]
  - POST PROCEDURAL HAEMORRHAGE [None]
